FAERS Safety Report 5806803-0 (Version None)
Quarter: 2008Q3

REPORT INFORMATION
  Report Type: 
  Country: None (occurrence: None)
  Receive Date: 20080711
  Receipt Date: 20080630
  Transmission Date: 20090109
  Serious: Yes (Other)
  Sender: FDA-Public Use
  Company Number: GB-JNJFOC-20080700966

PATIENT
  Age: 61 Year
  Sex: Female
  Weight: 90 kg

DRUGS (4)
  1. TRAMADOL HYDROCHLORIDE [Suspect]
     Indication: DRUG USE FOR UNKNOWN INDICATION
     Route: 048
  2. NEURONTIN [Suspect]
     Indication: DRUG USE FOR UNKNOWN INDICATION
     Route: 065
  3. ASPIRIN [Concomitant]
     Route: 065
  4. METFORMIN HCL [Concomitant]
     Route: 065

REACTIONS (9)
  - CONFUSIONAL STATE [None]
  - DIZZINESS [None]
  - GAIT DISTURBANCE [None]
  - HALLUCINATION [None]
  - NAUSEA [None]
  - PHOTOPSIA [None]
  - SOMNOLENCE [None]
  - VISUAL IMPAIRMENT [None]
  - VOMITING [None]
